FAERS Safety Report 23093955 (Version 1)
Quarter: 2023Q4

REPORT INFORMATION
  Report Type: Spontaneous
  Country: CN (occurrence: CN)
  Receive Date: 20231023
  Receipt Date: 20231023
  Transmission Date: 20240110
  Serious: Yes (Life-Threatening, Hospitalization, Other)
  Sender: FDA-Public Use
  Company Number: CN-SANDOZ-SDZ2023CN043502

PATIENT
  Age: 59 Year
  Sex: Male
  Weight: 63 kg

DRUGS (3)
  1. CISPLATIN [Suspect]
     Active Substance: CISPLATIN
     Indication: Oesophageal carcinoma
     Dosage: FIVE CYCLES
     Route: 065
     Dates: start: 202201, end: 202202
  2. PACLITAXEL [Suspect]
     Active Substance: PACLITAXEL
     Indication: Oesophageal carcinoma
     Dosage: FIVE CYCLES
     Route: 065
     Dates: start: 202201, end: 202202
  3. SUGAMMADEX SODIUM [Suspect]
     Active Substance: SUGAMMADEX SODIUM
     Indication: Neuromuscular blockade reversal
     Dosage: 4 MG.KG-1 (250 MG)
     Route: 065
     Dates: start: 20220401

REACTIONS (2)
  - Recurrence of neuromuscular blockade [Recovering/Resolving]
  - Muscle injury [Unknown]
